FAERS Safety Report 19005044 (Version 1)
Quarter: 2021Q1

REPORT INFORMATION
  Report Type: Spontaneous
  Country: DK (occurrence: DK)
  Receive Date: 20210312
  Receipt Date: 20210312
  Transmission Date: 20210420
  Serious: Yes (Other)
  Sender: FDA-Public Use
  Company Number: NVSC2021DK053014

PATIENT
  Sex: Female
  Weight: 55 kg

DRUGS (5)
  1. OMEPRAZOLE. [Suspect]
     Active Substance: OMEPRAZOLE
     Indication: BARRETT^S OESOPHAGUS
     Dosage: 20 MG, QD
     Route: 065
  2. OMEPRAZOLE TEVA [Suspect]
     Active Substance: OMEPRAZOLE
     Dosage: 40 MG, QD (AT BEDTIME)
     Route: 065
     Dates: start: 2010
  3. OMEPRAZOLE TEVA [Suspect]
     Active Substance: OMEPRAZOLE
     Indication: BARRETT^S OESOPHAGUS
     Dosage: 20 MG, QD
     Route: 065
  4. OMEPRAZOLE. [Suspect]
     Active Substance: OMEPRAZOLE
     Dosage: 40 MG, QD (AT BEDTIME)
     Route: 065
     Dates: start: 2010
  5. METFORMIN [Concomitant]
     Active Substance: METFORMIN HYDROCHLORIDE
     Indication: PRODUCT USED FOR UNKNOWN INDICATION
     Dosage: UNK
     Route: 065

REACTIONS (6)
  - Muscle disorder [Unknown]
  - Oesophageal ulcer [Unknown]
  - Oesophagitis [Unknown]
  - Muscle spasms [Recovering/Resolving]
  - Pain [Recovering/Resolving]
  - Dizziness [Unknown]
